FAERS Safety Report 16482598 (Version 7)
Quarter: 2019Q3

REPORT INFORMATION
  Report Type: Spontaneous
  Country: JP (occurrence: JP)
  Receive Date: 20190627
  Receipt Date: 20190918
  Transmission Date: 20191004
  Serious: Yes (Death, Hospitalization, Other)
  Sender: FDA-Public Use
  Company Number: JP-ASTELLAS-2019JP009761

PATIENT
  Age: 72 Year
  Sex: Male

DRUGS (5)
  1. HYDREA [Concomitant]
     Active Substance: HYDROXYUREA
     Indication: MYELOBLAST COUNT INCREASED
     Dosage: UNK UNK, UNKNOWN FREQ.
     Route: 065
     Dates: start: 20190626
  2. HYDREA [Concomitant]
     Active Substance: HYDROXYUREA
     Indication: LYMPHOBLAST COUNT INCREASED
  3. ARGAMATE [Concomitant]
     Active Substance: CALCIUM POLYSTYRENE SULFONATE
     Indication: BLOOD POTASSIUM INCREASED
     Dosage: UNK UNK, UNKNOWN FREQ.
     Route: 065
     Dates: start: 201905
  4. XOSPATA [Suspect]
     Active Substance: GILTERITINIB
     Indication: ACUTE MYELOID LEUKAEMIA
     Route: 048
     Dates: start: 20190512, end: 20190624
  5. XOSPATA [Suspect]
     Active Substance: GILTERITINIB
     Route: 048
     Dates: start: 20190625

REACTIONS (6)
  - Tumour lysis syndrome [Recovered/Resolved]
  - Lymphoblast count increased [Recovering/Resolving]
  - Pyrexia [Recovered/Resolved]
  - Myeloblast count increased [Recovering/Resolving]
  - Disseminated intravascular coagulation [Recovered/Resolved]
  - Infection [Fatal]

NARRATIVE: CASE EVENT DATE: 20190513
